FAERS Safety Report 5483298-0 (Version None)
Quarter: 2007Q4

REPORT INFORMATION
  Report Type: 
  Country: None (occurrence: None)
  Receive Date: 20071012
  Receipt Date: 20071003
  Transmission Date: 20080405
  Serious: Yes (Other)
  Sender: FDA-Public Use
  Company Number: PHBS2007JP16579

PATIENT
  Sex: Female

DRUGS (2)
  1. ZOMETA [Suspect]
     Indication: METASTASES TO BONE
     Dosage: 4 MG, UNK
     Route: 042
     Dates: start: 20060701
  2. BISPHONAL [Suspect]

REACTIONS (4)
  - DENTAL CARIES [None]
  - FEELING HOT [None]
  - GINGIVAL BLEEDING [None]
  - OSTEONECROSIS [None]
